FAERS Safety Report 21261603 (Version 1)
Quarter: 2022Q3

REPORT INFORMATION
  Report Type: Report from Study
  Country: CA (occurrence: CA)
  Receive Date: 20220827
  Receipt Date: 20220827
  Transmission Date: 20221027
  Serious: Yes (Other)
  Sender: FDA-Public Use
  Company Number: CA-NOVARTISPH-NVSC2022CA191216

PATIENT
  Sex: Female

DRUGS (4)
  1. OLMESARTAN [Suspect]
     Active Substance: OLMESARTAN
     Indication: Product used for unknown indication
     Dosage: 1 X 40/12.5MG
     Route: 048
  2. DILTIAZEM [Suspect]
     Active Substance: DILTIAZEM
     Indication: Product used for unknown indication
     Dosage: 240 MG
     Route: 065
  3. VENLAFAXINE [Suspect]
     Active Substance: VENLAFAXINE HYDROCHLORIDE
     Indication: Product used for unknown indication
     Dosage: 50 MG, QD
     Route: 065
  4. ORTHO EVRA [Concomitant]
     Active Substance: ETHINYL ESTRADIOL\NORELGESTROMIN
     Indication: Contraception
     Dosage: UNK
     Route: 065

REACTIONS (15)
  - Anaphylactic reaction [Unknown]
  - Stress [Unknown]
  - Allergy to venom [Unknown]
  - Pharyngeal swelling [Unknown]
  - Swollen tongue [Unknown]
  - Dyspnoea [Unknown]
  - Chronic spontaneous urticaria [Unknown]
  - Asthma [Unknown]
  - Cough [Recovered/Resolved]
  - Wheezing [Unknown]
  - Poor quality sleep [Unknown]
  - Atopy [Unknown]
  - Urticaria [Unknown]
  - Rash erythematous [Unknown]
  - Rash papular [Unknown]

NARRATIVE: CASE EVENT DATE: 20220101
